FAERS Safety Report 8911357 (Version 3)
Quarter: 2013Q1

REPORT INFORMATION
  Report Type: Report from Study
  Country: JP (occurrence: JP)
  Receive Date: 20121115
  Receipt Date: 20130129
  Transmission Date: 20140127
  Serious: Yes (Hospitalization)
  Sender: FDA-Public Use
  Company Number: JP-ABBOTT-12P-087-1005128-00

PATIENT
  Age: 12 Year
  Sex: Male
  Weight: 30.5 kg

DRUGS (7)
  1. HUMIRA [Suspect]
     Indication: CROHN^S DISEASE
     Route: 058
     Dates: start: 20110210, end: 20110210
  2. HUMIRA [Suspect]
     Dates: start: 20110222, end: 20110222
  3. HUMIRA [Suspect]
     Dates: start: 20110308
  4. MESALAZINE [Concomitant]
     Indication: CROHN^S DISEASE
     Route: 048
  5. ANTIBIOTICS-RESISTANT LACTIC ACID BACTERIAE [Concomitant]
     Indication: PROPHYLAXIS
     Route: 048
  6. CALCIUM L-ASPARTATE HYDRATE [Concomitant]
     Indication: PROPHYLAXIS
     Route: 048
  7. BERBERINE CHLORIDE HYDRATE/GERANIUM HERB EXTRACT [Concomitant]
     Indication: PROPHYLAXIS
     Route: 048

REACTIONS (3)
  - Pyrexia [Recovering/Resolving]
  - Crohn^s disease [Recovering/Resolving]
  - Drug ineffective [Unknown]
